FAERS Safety Report 4454725-2 (Version None)
Quarter: 2004Q3

REPORT INFORMATION
  Report Type: 
  Country: None (occurrence: None)
  Receive Date: 20040920
  Receipt Date: 20040920
  Transmission Date: 20050211
  Serious: Yes (Hospitalization)
  Sender: FDA-Public Use
  Company Number: None

PATIENT
  Age: 50 Year
  Sex: Male
  Weight: 92.3 kg

DRUGS (2)
  1. VANCOMYCIN [Suspect]
     Indication: SEPSIS
     Dosage: 1500 MG BY LEVELS INTRAVENOUS
     Route: 042
     Dates: start: 20040713, end: 20040802
  2. ZOSYN [Suspect]
     Indication: SEPSIS
     Dosage: 2.25 GM Q6H INTRAVENOUS
     Route: 042
     Dates: start: 20040713, end: 20040719

REACTIONS (1)
  - NO ADVERSE DRUG EFFECT [None]
